FAERS Safety Report 5292706-X (Version None)
Quarter: 2007Q2

REPORT INFORMATION
  Report Type: 
  Country: None (occurrence: None)
  Receive Date: 20070404
  Receipt Date: 20070326
  Transmission Date: 20071010
  Serious: Yes (Hospitalization)
  Sender: FDA-Public Use
  Company Number: TPA2006A01710

PATIENT
  Age: 51 Year
  Sex: Female
  Weight: 63.05 kg

DRUGS (2)
  1. ROZEREM [Suspect]
     Indication: INSOMNIA
     Dosage: 8 MG, QHS, PER ORAL
     Route: 048
     Dates: start: 20060126
  2. SYNTHROID [Concomitant]

REACTIONS (6)
  - DRUG INEFFECTIVE [None]
  - INITIAL INSOMNIA [None]
  - LABORATORY TEST ABNORMAL [None]
  - SOMNOLENCE [None]
  - THYROID CANCER [None]
  - WEIGHT INCREASED [None]
